FAERS Safety Report 18731315 (Version 2)
Quarter: 2021Q1

REPORT INFORMATION
  Report Type: Spontaneous
  Country: FR (occurrence: FR)
  Receive Date: 20210112
  Receipt Date: 20210203
  Transmission Date: 20210419
  Serious: Yes (Hospitalization)
  Sender: FDA-Public Use
  Company Number: NVSC2021FR004671

PATIENT
  Age: 60 Year
  Sex: Male
  Weight: 68 kg

DRUGS (10)
  1. SINGULAIR [Concomitant]
     Active Substance: MONTELUKAST SODIUM
     Indication: ASTHMA
     Dosage: 10 MG,QD
     Route: 048
  2. AERIUS [Concomitant]
     Indication: HYPERSENSITIVITY
     Dosage: 5 MG,QD
     Route: 048
  3. DIFFU K [Suspect]
     Active Substance: POTASSIUM CHLORIDE
     Indication: HYPOKALAEMIA
     Dosage: UNK (600 MG/J1 J2 J4 J5 J8 J9 J11 J12)
     Route: 048
     Dates: start: 20201208, end: 20201211
  4. NEOFORDEX [Suspect]
     Active Substance: DEXAMETHASONE ACETATE
     Indication: PLASMA CELL MYELOMA
     Dosage: 1 UNK, (20 MG PAR JOUR LE JOUR ET LE LENDEMAIN DE CHAQUE INJECTION DE VELCADE (BORTEZOMIB))
     Route: 048
     Dates: start: 20201208, end: 20201211
  5. REVLIMID [Suspect]
     Active Substance: LENALIDOMIDE
     Indication: PLASMA CELL MYELOMA
     Dosage: 25 MG,QD
     Route: 048
     Dates: start: 20201208, end: 20201211
  6. VELCADE [Suspect]
     Active Substance: BORTEZOMIB
     Indication: PLASMA CELL MYELOMA
     Dosage: UNK, (1.4 MG/M? SOIT 2.2 MG DOSE TOTALE ? J1, J4, J8 ET J11)
     Route: 058
     Dates: start: 20201208, end: 20201211
  7. VALACICLOVIR [Suspect]
     Active Substance: VALACYCLOVIR HYDROCHLORIDE
     Indication: OPPORTUNISTIC INFECTION PROPHYLAXIS
     Dosage: 1000 MG,QD
     Route: 048
     Dates: start: 20201208, end: 20201211
  8. BACTRIM [Suspect]
     Active Substance: SULFAMETHOXAZOLE\TRIMETHOPRIM
     Indication: OPPORTUNISTIC INFECTION PROPHYLAXIS
     Dosage: UNK (800/160 MG 3 FOIS PAR SEMAINE)
     Route: 048
     Dates: start: 20201208, end: 20201211
  9. ELIQUIS [Suspect]
     Active Substance: APIXABAN
     Indication: THROMBOSIS PROPHYLAXIS
     Dosage: 5 MG,QD
     Route: 048
     Dates: start: 20201208, end: 20201211
  10. SALBUTAMOL [Concomitant]
     Active Substance: ALBUTEROL
     Indication: ASTHMA
     Dosage: 100 UG
     Route: 055

REACTIONS (2)
  - Rash erythematous [Recovering/Resolving]
  - Pyrexia [Recovered/Resolved]

NARRATIVE: CASE EVENT DATE: 20201210
